FAERS Safety Report 7801314-5 (Version None)
Quarter: 2011Q4

REPORT INFORMATION
  Report Type: 
  Country: None (occurrence: None)
  Receive Date: 20111006
  Receipt Date: 20111006
  Transmission Date: 20120403
  Serious: Yes (Hospitalization)
  Sender: FDA-Public Use
  Company Number: None

PATIENT
  Age: 80 Year
  Sex: Female
  Weight: 75.5 kg

DRUGS (7)
  1. BC POWDERS [Suspect]
     Indication: BACK PAIN
     Dosage: PRN PO RECENT
     Route: 048
  2. METOPROLOL TARTRATE [Concomitant]
  3. ZANTAC [Concomitant]
  4. SPIRONOLACTONE [Concomitant]
  5. EXCEDRIN (MIGRAINE) [Suspect]
     Indication: BACK PAIN
     Dosage: PRN PO RECENT
     Route: 048
  6. PRAVACHOL [Concomitant]
  7. MICARDIS [Concomitant]

REACTIONS (2)
  - GASTROINTESTINAL HAEMORRHAGE [None]
  - GASTRIC ULCER [None]
